FAERS Safety Report 16313091 (Version 3)
Quarter: 2019Q2

REPORT INFORMATION
  Report Type: Spontaneous
  Country: IN (occurrence: IN)
  Receive Date: 20190515
  Receipt Date: 20190626
  Transmission Date: 20190711
  Serious: Yes (Death, Hospitalization, Other)
  Sender: FDA-Public Use
  Company Number: IN-GLENMARK PHARMACEUTICALS-2019GMK041068

PATIENT

DRUGS (1)
  1. TELMA 20 [Suspect]
     Active Substance: TELMISARTAN
     Indication: HYPERTENSION
     Dosage: 20 MG, BID
     Route: 065
     Dates: start: 20190115

REACTIONS (3)
  - Myocardial infarction [Fatal]
  - Pneumonia [Fatal]
  - Blood potassium increased [Unknown]

NARRATIVE: CASE EVENT DATE: 2019
